FAERS Safety Report 21122292 (Version 1)
Quarter: 2022Q3

REPORT INFORMATION
  Report Type: Report from Study
  Country: US (occurrence: US)
  Receive Date: 20220723
  Receipt Date: 20220723
  Transmission Date: 20221027
  Serious: Yes (Other)
  Sender: FDA-Public Use
  Company Number: US-ABBVIE-22K-163-4479161-00

PATIENT
  Sex: Female

DRUGS (1)
  1. VENCLEXTA [Suspect]
     Active Substance: VENETOCLAX
     Indication: Acute myeloid leukaemia
     Route: 048

REACTIONS (5)
  - Haemoglobin abnormal [Recovering/Resolving]
  - Platelet count abnormal [Recovering/Resolving]
  - Candida infection [Recovering/Resolving]
  - White blood cell count decreased [Recovering/Resolving]
  - Fatigue [Recovering/Resolving]
